FAERS Safety Report 13800697 (Version 1)
Quarter: 2017Q3

REPORT INFORMATION
  Report Type: Spontaneous
  Country: GB (occurrence: GB)
  Receive Date: 20170727
  Receipt Date: 20170727
  Transmission Date: 20171127
  Serious: Yes (Other)
  Sender: FDA-Public Use
  Company Number: GB-009507513-1707GBR011118

PATIENT
  Age: 94 Year
  Sex: Female
  Weight: 67.7 kg

DRUGS (9)
  1. CLENIL MODULITE [Concomitant]
     Active Substance: BECLOMETHASONE DIPROPIONATE
  2. SENNA [Concomitant]
     Active Substance: SENNA LEAF\SENNOSIDES\SENNOSIDES A AND B
  3. TINZAPARIN SODIUM [Concomitant]
     Active Substance: TINZAPARIN SODIUM
  4. CLOPIDOGREL [Concomitant]
     Active Substance: CLOPIDOGREL BISULFATE
     Indication: URINARY TRACT INFECTION
  5. ERTAPENEM SODIUM [Suspect]
     Active Substance: ERTAPENEM SODIUM
     Indication: URINARY TRACT INFECTION
     Route: 042
     Dates: start: 20170712, end: 20170716
  6. CHOLECALCIFEROL [Concomitant]
     Active Substance: CHOLECALCIFEROL
  7. FOLIC ACID. [Concomitant]
     Active Substance: FOLIC ACID
  8. LANSOPRAZOLE. [Concomitant]
     Active Substance: LANSOPRAZOLE
  9. NITROFURANTOIN. [Concomitant]
     Active Substance: NITROFURANTOIN
     Indication: URINARY TRACT INFECTION

REACTIONS (6)
  - Facial paralysis [Unknown]
  - Blood test abnormal [Unknown]
  - Asthenia [Unknown]
  - Aphasia [Unknown]
  - Tremor [Recovered/Resolved with Sequelae]
  - Petit mal epilepsy [Recovered/Resolved with Sequelae]

NARRATIVE: CASE EVENT DATE: 20170714
